FAERS Safety Report 24909227 (Version 1)
Quarter: 2025Q1

REPORT INFORMATION
  Report Type: Spontaneous
  Country: CA (occurrence: CA)
  Receive Date: 20250131
  Receipt Date: 20250131
  Transmission Date: 20250409
  Serious: Yes (Hospitalization)
  Sender: ROCHE
  Company Number: CA-002147023-NVSC2025CA012055

PATIENT
  Age: 80 Year
  Sex: Female

DRUGS (13)
  1. OMALIZUMAB [Suspect]
     Active Substance: OMALIZUMAB
     Indication: Asthma
     Route: 050
  2. OMALIZUMAB [Suspect]
     Active Substance: OMALIZUMAB
     Route: 065
  3. OMALIZUMAB [Suspect]
     Active Substance: OMALIZUMAB
     Route: 050
  4. ADVAIR HFA [Concomitant]
     Active Substance: FLUTICASONE PROPIONATE\SALMETEROL XINAFOATE
     Indication: Product used for unknown indication
     Dosage: 250 MICROGRAM, QD
     Route: 050
  5. ADVAIR HFA [Concomitant]
     Active Substance: FLUTICASONE PROPIONATE\SALMETEROL XINAFOATE
     Dosage: 250 MICROGRAM, QD
     Route: 050
  6. ESOMEPRAZOLE [Concomitant]
     Active Substance: ESOMEPRAZOLE
     Indication: Product used for unknown indication
     Route: 065
  7. NASONEX [Concomitant]
     Active Substance: MOMETASONE FUROATE
     Indication: Product used for unknown indication
     Route: 065
  8. PREDNISONE [Concomitant]
     Active Substance: PREDNISONE
     Indication: Product used for unknown indication
     Route: 065
  9. PULMICORT TURBUHALER [Concomitant]
     Active Substance: BUDESONIDE
     Indication: Product used for unknown indication
     Route: 065
  10. QVAR [Concomitant]
     Active Substance: BECLOMETHASONE DIPROPIONATE
     Indication: Product used for unknown indication
     Route: 050
  11. ROSUVASTATIN CALCIUM [Concomitant]
     Active Substance: ROSUVASTATIN CALCIUM
     Indication: Product used for unknown indication
     Route: 065
  12. ALBUTEROL [Concomitant]
     Active Substance: ALBUTEROL
     Indication: Chronic obstructive pulmonary disease
     Route: 065
  13. ALBUTEROL [Concomitant]
     Active Substance: ALBUTEROL
     Route: 065

REACTIONS (30)
  - Dyslipidaemia [Recovering/Resolving]
  - Asthma [Recovering/Resolving]
  - Back pain [Recovering/Resolving]
  - Chest discomfort [Recovering/Resolving]
  - Discomfort [Recovering/Resolving]
  - Cough [Recovering/Resolving]
  - Dyspnoea [Recovering/Resolving]
  - Forced expiratory flow decreased [Recovering/Resolving]
  - Haemoglobin decreased [Recovering/Resolving]
  - Hypertension [Recovering/Resolving]
  - Influenza [Recovering/Resolving]
  - Insomnia [Recovering/Resolving]
  - Malaise [Recovering/Resolving]
  - Mean cell volume decreased [Recovering/Resolving]
  - Middle insomnia [Recovering/Resolving]
  - Obstructive airways disorder [Recovering/Resolving]
  - Mobility decreased [Recovering/Resolving]
  - Oropharyngeal discomfort [Recovering/Resolving]
  - Osteopenia [Recovering/Resolving]
  - Perfume sensitivity [Recovering/Resolving]
  - Pulmonary tuberculosis [Recovering/Resolving]
  - Red cell distribution width increased [Recovering/Resolving]
  - Respiration abnormal [Recovering/Resolving]
  - Respiratory rate increased [Recovering/Resolving]
  - Sleep disorder [Recovering/Resolving]
  - Smoke sensitivity [Recovering/Resolving]
  - Type 2 diabetes mellitus [Recovering/Resolving]
  - Weight decreased [Recovering/Resolving]
  - Wheezing [Recovering/Resolving]
  - White blood cell count abnormal [Recovering/Resolving]
